FAERS Safety Report 8221431-8 (Version None)
Quarter: 2012Q1

REPORT INFORMATION
  Report Type: 
  Country: None (occurrence: None)
  Receive Date: 20120320
  Receipt Date: 20120314
  Transmission Date: 20120608
  Serious: No
  Sender: FDA-Public Use
  Company Number: US-PFIZER INC-2012067753

PATIENT
  Sex: Male
  Weight: 72.562 kg

DRUGS (3)
  1. ZYVOX [Suspect]
     Indication: PNEUMONIA
     Dosage: 600 MG, 2X/DAY
     Route: 048
     Dates: start: 20120224, end: 20120306
  2. CEFUROXIME [Concomitant]
     Dosage: UNK
  3. AZITHROMYCIN [Concomitant]
     Dosage: UNK

REACTIONS (1)
  - TONGUE DISCOLOURATION [None]
